FAERS Safety Report 8197598-7 (Version None)
Quarter: 2012Q1

REPORT INFORMATION
  Report Type: 
  Country: None (occurrence: None)
  Receive Date: 20120309
  Receipt Date: 20120223
  Transmission Date: 20120608
  Serious: Yes (Other)
  Sender: FDA-Public Use
  Company Number: CO-ROCHE-1000365

PATIENT
  Age: 66 Year
  Sex: Female
  Weight: 58.3 kg

DRUGS (3)
  1. PLACEBO [Suspect]
     Indication: RHEUMATOID ARTHRITIS
     Route: 058
  2. ACTEMRA [Suspect]
  3. ACTEMRA [Suspect]
     Indication: RHEUMATOID ARTHRITIS
     Route: 042
     Dates: start: 20111206

REACTIONS (2)
  - HEPATIC STEATOSIS [None]
  - CHOLELITHIASIS [None]
